FAERS Safety Report 7913143-2 (Version None)
Quarter: 2011Q4

REPORT INFORMATION
  Report Type: 
  Country: None (occurrence: None)
  Receive Date: 20111114
  Receipt Date: 20111031
  Transmission Date: 20120403
  Serious: Yes (Hospitalization)
  Sender: FDA-Public Use
  Company Number: US-ELI_LILLY_AND_COMPANY-US201110002542

PATIENT
  Sex: Female

DRUGS (11)
  1. VITAMIN D [Concomitant]
  2. FISH OIL [Concomitant]
  3. FORTEO [Suspect]
     Dosage: 20 UG, QD
     Route: 065
  4. FORTEO [Suspect]
     Indication: OSTEOPOROSIS
     Dosage: 20 UG, QD
     Route: 058
     Dates: start: 20100507
  5. CITRACAL + D [Concomitant]
  6. WARFARIN SODIUM [Concomitant]
  7. LASIX [Concomitant]
  8. LIPITOR [Concomitant]
  9. FOLIC ACID [Concomitant]
  10. DETROL LA [Concomitant]
     Dosage: 4 MG, UNK
  11. CARBIDOPA AND LEVODOPA [Concomitant]

REACTIONS (3)
  - OEDEMA PERIPHERAL [None]
  - UPPER LIMB FRACTURE [None]
  - FALL [None]
